FAERS Safety Report 15699814 (Version 1)
Quarter: 2018Q4

REPORT INFORMATION
  Report Type: Spontaneous
  Country: US (occurrence: US)
  Receive Date: 20181207
  Receipt Date: 20181207
  Transmission Date: 20190205
  Serious: Yes (Other)
  Sender: FDA-Public Use
  Company Number: US-PFIZER INC-2018504519

PATIENT
  Age: 79 Year
  Sex: Female

DRUGS (1)
  1. IBRANCE [Suspect]
     Active Substance: PALBOCICLIB
     Dosage: 100 MG, UNK

REACTIONS (9)
  - Fatigue [Unknown]
  - Flatulence [Unknown]
  - Large intestinal obstruction [Unknown]
  - Oedema peripheral [Unknown]
  - Peripheral swelling [Unknown]
  - Abdominal distension [Unknown]
  - Malaise [Unknown]
  - Abdominal pain [Unknown]
  - Back pain [Unknown]
